FAERS Safety Report 9625783 (Version 2)
Quarter: 2013Q4

REPORT INFORMATION
  Report Type: Report from Study
  Country: JP (occurrence: JP)
  Receive Date: 20131016
  Receipt Date: 20131016
  Transmission Date: 20140711
  Serious: Yes (Other)
  Sender: FDA-Public Use
  Company Number: JP-ASTELLAS-2013US009713

PATIENT
  Age: 75 Year
  Sex: Male

DRUGS (1)
  1. AMBISOME [Suspect]
     Indication: FEBRILE NEUTROPENIA
     Dosage: 150 MG, UID/QD
     Route: 065
     Dates: start: 20130621, end: 20130722

REACTIONS (4)
  - Hypokalaemia [Unknown]
  - Blood creatinine increased [Unknown]
  - Pneumonia [Unknown]
  - Hyperuricaemia [Unknown]
